FAERS Safety Report 16119236 (Version 1)
Quarter: 2019Q1

REPORT INFORMATION
  Report Type: Spontaneous
  Country: SI (occurrence: SI)
  Receive Date: 20190326
  Receipt Date: 20190326
  Transmission Date: 20190418
  Serious: Yes (Hospitalization, Other)
  Sender: FDA-Public Use
  Company Number: SI-PFIZER INC-2019123799

PATIENT
  Age: 14 Year
  Sex: Female

DRUGS (5)
  1. QUETIAPINE. [Suspect]
     Active Substance: QUETIAPINE
     Indication: BORDERLINE PERSONALITY DISORDER
     Dosage: 25 MG, AS NEEDED
     Route: 065
  2. SERTRALINE HCL [Suspect]
     Active Substance: SERTRALINE HYDROCHLORIDE
     Indication: BORDERLINE PERSONALITY DISORDER
     Dosage: 50 MG, UNK, (IN THE MORNING)
     Route: 065
  3. LAMOTRIGINE. [Suspect]
     Active Substance: LAMOTRIGINE
     Indication: BORDERLINE PERSONALITY DISORDER
     Dosage: 50 MG, UNK
     Route: 065
  4. LAMOTRIGINE. [Suspect]
     Active Substance: LAMOTRIGINE
     Dosage: 75 MG, UNK
     Route: 065
  5. ARIPIPRAZOLE. [Suspect]
     Active Substance: ARIPIPRAZOLE
     Indication: BORDERLINE PERSONALITY DISORDER
     Dosage: 5 MG, UNK, (IN THE EVENING)
     Route: 065

REACTIONS (24)
  - Depression [Unknown]
  - Depressive symptom [Unknown]
  - Depression suicidal [Unknown]
  - Aggression [Unknown]
  - Neck injury [Unknown]
  - Suicide threat [Unknown]
  - Affect lability [Unknown]
  - Wound [Unknown]
  - Suicidal ideation [Unknown]
  - Separation anxiety disorder [Unknown]
  - Memory impairment [Unknown]
  - Intentional self-injury [Unknown]
  - Emotional disorder [Unknown]
  - Vomiting [Unknown]
  - Product use in unapproved indication [Unknown]
  - Morbid thoughts [Unknown]
  - Emotional distress [Unknown]
  - Emotional poverty [Unknown]
  - Sexual abuse [Unknown]
  - Self esteem decreased [Unknown]
  - Suicide attempt [Unknown]
  - Impulsive behaviour [Unknown]
  - Disturbance in attention [Unknown]
  - Sleep disorder [Unknown]

NARRATIVE: CASE EVENT DATE: 20180328
